FAERS Safety Report 22330875 (Version 1)
Quarter: 2023Q2

REPORT INFORMATION
  Report Type: Spontaneous
  Country: US (occurrence: None)
  Receive Date: 20230515
  Receipt Date: 20230515
  Transmission Date: 20230722
  Serious: Yes (Hospitalization, Other)
  Sender: FDA-Public Use
  Company Number: None

PATIENT
  Age: 66 Year
  Sex: Female

DRUGS (1)
  1. AMOXICILLIN [Suspect]
     Active Substance: AMOXICILLIN
     Dosage: FREQUENCY : 3 TIMES A DAY;?
     Route: 048

REACTIONS (6)
  - Hypersensitivity [None]
  - Pancytopenia [None]
  - Febrile neutropenia [None]
  - Drug eruption [None]
  - Agranulocytosis [None]
  - Respiratory failure [None]

NARRATIVE: CASE EVENT DATE: 20230414
